FAERS Safety Report 19869823 (Version 1)
Quarter: 2021Q3

REPORT INFORMATION
  Report Type: Spontaneous
  Country: US (occurrence: US)
  Receive Date: 20210922
  Receipt Date: 20210922
  Transmission Date: 20211014
  Serious: Yes (Hospitalization)
  Sender: FDA-Public Use
  Company Number: US-SCA PHARMACEUTICALS-2021SCA00012

PATIENT
  Age: 26 Year
  Sex: Female
  Weight: 146 kg

DRUGS (16)
  1. OXYTOCIN IN 0.9% SODIUM CHLORIDE [Suspect]
     Active Substance: OXYTOCIN
     Dosage: 6 MILLI?UNITS/MINUTE
     Route: 042
     Dates: start: 20210728, end: 20210728
  2. OXYTOCIN IN 0.9% SODIUM CHLORIDE [Suspect]
     Active Substance: OXYTOCIN
     Dosage: TITRATED FROM 15 MILLI?UNITS/MINUTE, INCREASED BY 2 MILLI?UNITS/MINUTE, UP TO 29 MILLI?UNITS/MINUTE
     Route: 042
     Dates: start: 20210728, end: 20210729
  3. BENADRYL [Concomitant]
     Active Substance: DIPHENHYDRAMINE HYDROCHLORIDE
     Dosage: 25 MG
     Route: 048
     Dates: start: 20210727, end: 20210727
  4. OXYTOCIN IN 0.9% SODIUM CHLORIDE [Suspect]
     Active Substance: OXYTOCIN
     Indication: UTERINE CONTRACTIONS DURING PREGNANCY
     Dosage: TITRATED FROM 6 MILLI?UNITS/MINUTE, INCREASING BY 2 MILLI?UNITS/MINUTE, UP TO 30 MILLI?UNITS/MINUTE
     Route: 042
     Dates: start: 20210727, end: 20210727
  5. OXYTOCIN IN 0.9% SODIUM CHLORIDE [Suspect]
     Active Substance: OXYTOCIN
     Dosage: 24 MILLI?UNITS/MINUTE
     Route: 042
     Dates: start: 20210728, end: 20210728
  6. OXYTOCIN IN 0.9% SODIUM CHLORIDE [Suspect]
     Active Substance: OXYTOCIN
     Dosage: 18 MILLI?UNITS/MINUTE
     Route: 042
     Dates: start: 20210728, end: 20210728
  7. OXYTOCIN IN 0.9% SODIUM CHLORIDE [Suspect]
     Active Substance: OXYTOCIN
     Dosage: 30 MILLI?UNITS/MINUTE
     Route: 042
     Dates: start: 20210729, end: 20210729
  8. OXYTOCIN IN 0.9% SODIUM CHLORIDE [Suspect]
     Active Substance: OXYTOCIN
     Dosage: 26 MILLI?UNITS/MINUTE
     Route: 042
     Dates: start: 20210728, end: 20210728
  9. OXYTOCIN IN 0.9% SODIUM CHLORIDE [Suspect]
     Active Substance: OXYTOCIN
     Dosage: TITRATED FROM 2 MILLI?UNITS/MINUTE, INCREASING BY 2 MILLI?UNITS/MINUTE, UP TO 10 MILLI?UNITS/MINUTE
     Route: 042
     Dates: start: 20210728, end: 20210728
  10. OXYTOCIN IN 0.9% SODIUM CHLORIDE [Suspect]
     Active Substance: OXYTOCIN
     Dosage: TITRATED FROM 6 MILLI?UNITS/MINUTE, INCREASED BY 2 MILLI?UNITS/MINUTE, UP TO 10 MILLI?UNITS/MINUTE
     Route: 042
     Dates: start: 20210728, end: 20210728
  11. LACTATED RINGERS SOLUTION [Concomitant]
     Active Substance: CALCIUM CHLORIDE\POTASSIUM CHLORIDE\SODIUM CHLORIDE\SODIUM LACTATE
     Dosage: 125 ML/HR
     Route: 042
     Dates: start: 202107
  12. OXYTOCIN IN 0.9% SODIUM CHLORIDE [Suspect]
     Active Substance: OXYTOCIN
     Indication: LABOUR INDUCTION
     Dosage: TITRATED FROM 2 MILLI?UNITS/MINUTE, INCREASING BY 2 MILLI?UNITS/MINUTE, UP TO 20 MILLI?UNITS/MINUTE
     Route: 042
     Dates: start: 20210726, end: 20210727
  13. OXYTOCIN IN 0.9% SODIUM CHLORIDE [Suspect]
     Active Substance: OXYTOCIN
     Dosage: 14 MILLI?UNITS/MINUTE
     Route: 042
     Dates: start: 20210728, end: 20210728
  14. OXYTOCIN IN 0.9% SODIUM CHLORIDE [Suspect]
     Active Substance: OXYTOCIN
     Dosage: TITRATED FROM 8 MILLI?UNITS/MINUTE, INCREASING BY 2 MILLI?UNITS/MINUTE, UP TO 24 MILLI?UNITS/MINUTE
     Route: 042
     Dates: start: 20210728, end: 20210728
  15. OXYTOCIN IN 0.9% SODIUM CHLORIDE [Suspect]
     Active Substance: OXYTOCIN
     Dosage: 8 MILLI?UNITS/MINUTE
     Route: 042
     Dates: start: 20210728, end: 20210728
  16. OXYTOCIN IN 0.9% SODIUM CHLORIDE [Suspect]
     Active Substance: OXYTOCIN
     Dosage: TITRATED FROM 22 MILLI?UNITS/MINUTE, INCREASED BY 2 MILLI?UNITS/MINUTE, UP TO 30 MILLI?UNITS/MINUTE
     Route: 042
     Dates: start: 20210728, end: 20210728

REACTIONS (1)
  - Drug ineffective [Recovered/Resolved]

NARRATIVE: CASE EVENT DATE: 20210726
